FAERS Safety Report 4372272-3 (Version None)
Quarter: 2004Q2

REPORT INFORMATION
  Report Type: 
  Country: None (occurrence: None)
  Receive Date: 20040602
  Receipt Date: 20040517
  Transmission Date: 20050107
  Serious: Yes (Life-Threatening)
  Sender: FDA-Public Use
  Company Number: 2004214417JP

PATIENT
  Age: 58 Year
  Sex: Male
  Weight: 70 kg

DRUGS (8)
  1. DOXORUBICIN HYDROCHLORIDE [Suspect]
     Indication: HODGKIN'S DISEASE
     Dosage: 42 MG, CYCLIC EVERY 4 WEEKS, IV
     Route: 042
     Dates: start: 20040129
  2. DACARBAZINE [Suspect]
     Indication: HODGKIN'S DISEASE
     Dosage: 640 MG, CYCLIC EVERY 4 WEEKS, IV
     Route: 042
     Dates: start: 20040129
  3. VINBLASTINE SULFATE [Suspect]
     Indication: HODGKIN'S DISEASE
     Dosage: 10 MG, CYCLIC EVERY 4 WEEKS, IV
     Route: 042
     Dates: start: 20040129
  4. BLEO (BLEOMYCIN HYDROCHLORIDE) [Suspect]
     Indication: HODGKIN'S DISEASE
     Dosage: 17 MG, CYCLIC EVERY 4 WEEKS, IV
     Route: 042
     Dates: start: 20040129
  5. TIENAM (CILASTATIN, IMIPENEM) [Concomitant]
  6. KEITEN (CEFPIROME SULFATE) [Concomitant]
  7. VANCOMYCIN [Concomitant]
  8. DIFLUCAN [Concomitant]

REACTIONS (2)
  - DISEASE RECURRENCE [None]
  - STEVENS-JOHNSON SYNDROME [None]
